FAERS Safety Report 8212249-0 (Version None)
Quarter: 2012Q1

REPORT INFORMATION
  Report Type: 
  Country: None (occurrence: None)
  Receive Date: 20120315
  Receipt Date: 20120312
  Transmission Date: 20120608
  Serious: Yes (Other)
  Sender: FDA-Public Use
  Company Number: US-JNJFOC-20120306120

PATIENT
  Age: 88 Year
  Sex: Female
  Weight: 53.07 kg

DRUGS (7)
  1. ALL OTHER THERAPEUTIC PRODUCTS [Concomitant]
     Route: 065
  2. WARFARIN SODIUM [Suspect]
     Dosage: EVERY OTHER DAY
     Route: 065
  3. WARFARIN SODIUM [Suspect]
     Indication: ANTICOAGULANT THERAPY
     Dosage: EVERY OTHER DAY
     Route: 065
  4. STOMACH AGENT [Suspect]
     Indication: PRODUCT USED FOR UNKNOWN INDICATION
     Route: 065
  5. EXTRA STRENGTH TYLENOL [Suspect]
     Route: 048
  6. EXTRA STRENGTH TYLENOL [Suspect]
     Indication: PAIN
     Dosage: 1 CAPLET AT BEDTIME FOR A FEW MONTHS.
     Route: 048
     Dates: end: 20120305
  7. WARFARIN SODIUM [Suspect]
     Route: 065

REACTIONS (2)
  - DIARRHOEA [None]
  - INTERNATIONAL NORMALISED RATIO INCREASED [None]
